FAERS Safety Report 6670752-9 (Version None)
Quarter: 2010Q2

REPORT INFORMATION
  Report Type: 
  Country: None (occurrence: None)
  Receive Date: 20100407
  Receipt Date: 20100329
  Transmission Date: 20101027
  Serious: Yes (Hospitalization, Other)
  Sender: FDA-Public Use
  Company Number: PHHY2010GB16098

PATIENT
  Sex: Female

DRUGS (5)
  1. CLOZARIL [Suspect]
     Indication: SCHIZOPHRENIA
     Dosage: UNK
     Dates: start: 19920729
  2. CLOZARIL [Suspect]
     Dosage: 800 MG, QD
  3. CLOZARIL [Suspect]
     Dosage: 225 MG, UNK
  4. HYOSCINE [Concomitant]
  5. VALPROIC ACID [Concomitant]

REACTIONS (9)
  - ABNORMAL BEHAVIOUR [None]
  - BLOOD CREATINE PHOSPHOKINASE INCREASED [None]
  - BLOOD ELECTROLYTES ABNORMAL [None]
  - BLOOD UREA ABNORMAL [None]
  - DRUG DOSE OMISSION [None]
  - LOWER RESPIRATORY TRACT INFECTION [None]
  - POLYDIPSIA [None]
  - SCHIZOPHRENIA [None]
  - STRESS [None]
